FAERS Safety Report 7509414-4 (Version None)
Quarter: 2011Q2

REPORT INFORMATION
  Report Type: 
  Country: None (occurrence: None)
  Receive Date: 20110527
  Receipt Date: 20110523
  Transmission Date: 20111010
  Serious: Yes (Hospitalization, Other)
  Sender: FDA-Public Use
  Company Number: US-ROCHE-778978

PATIENT
  Age: 65 Year
  Sex: Female
  Weight: 70.3 kg

DRUGS (5)
  1. CIALIS [Suspect]
     Indication: ANXIETY
     Dosage: OTHER INDICATION: DEPRESSION
     Route: 048
  2. EFFEXOR [Suspect]
     Dosage: INDICATION: DEPRESSION AND ANXIETY
     Route: 048
     Dates: start: 20090101, end: 20100101
  3. CLONAZEPAM [Suspect]
     Indication: ANXIETY
     Dosage: ONE HALF TO ONE TABLET OF 1 MG
     Route: 048
  4. XANAX [Suspect]
     Indication: ANXIETY
     Dosage: FREQ: 2-3 TIMES DAILY. OTHER INDICATION: DEPRESSION
     Route: 048
     Dates: start: 19830101, end: 20110201
  5. EFFEXOR [Suspect]
     Indication: ANXIETY
     Dosage: OTHER INDICATION: DEPRESSION
     Route: 048
     Dates: start: 20090101, end: 20090101

REACTIONS (9)
  - FALL [None]
  - LIMB CRUSHING INJURY [None]
  - CRYING [None]
  - CEREBROVASCULAR ACCIDENT [None]
  - DRUG INEFFECTIVE [None]
  - ACCIDENT [None]
  - HYDROCEPHALUS [None]
  - HAND FRACTURE [None]
  - SUICIDAL IDEATION [None]
